FAERS Safety Report 5786424-9 (Version None)
Quarter: 2008Q2

REPORT INFORMATION
  Report Type: 
  Country: None (occurrence: None)
  Receive Date: 20080624
  Receipt Date: 20070703
  Transmission Date: 20081010
  Serious: No
  Sender: FDA-Public Use
  Company Number: US-ASTRAZENECA-2007UW15694

PATIENT

DRUGS (1)
  1. PULMICORT-100 [Suspect]
     Route: 055

REACTIONS (3)
  - DRUG INEFFECTIVE [None]
  - GENERAL SYMPTOM [None]
  - PHARMACEUTICAL PRODUCT COMPLAINT [None]
